FAERS Safety Report 20345416 (Version 10)
Quarter: 2024Q3

REPORT INFORMATION
  Report Type: Report from Study
  Country: CA (occurrence: CA)
  Receive Date: 20220118
  Receipt Date: 20240912
  Transmission Date: 20241016
  Serious: No
  Sender: ROCHE
  Company Number: CA-ROCHE-2996745

PATIENT
  Age: 36 Year
  Sex: Female

DRUGS (2)
  1. OCREVUS [Suspect]
     Active Substance: OCRELIZUMAB
     Indication: Relapsing-remitting multiple sclerosis
     Dosage: 300 MG AT DAY 0 AND 14, THEN 600 MG EVERY 6 MONTH
     Route: 042
     Dates: start: 20200626
  2. LYRICA [Concomitant]
     Active Substance: PREGABALIN

REACTIONS (9)
  - Nasal congestion [Recovering/Resolving]
  - Cough [Unknown]
  - Fatigue [Recovering/Resolving]
  - COVID-19 [Recovered/Resolved]
  - Pain in extremity [Recovering/Resolving]
  - Arthralgia [Recovering/Resolving]
  - Neck pain [Recovering/Resolving]
  - Haemoglobin decreased [Unknown]
  - Memory impairment [Unknown]

NARRATIVE: CASE EVENT DATE: 20211231
